FAERS Safety Report 4674147-9 (Version None)
Quarter: 2005Q2

REPORT INFORMATION
  Report Type: 
  Country: None (occurrence: None)
  Receive Date: 20050524
  Receipt Date: 20050524
  Transmission Date: 20051028
  Serious: Yes (Hospitalization)
  Sender: FDA-Public Use
  Company Number: None

PATIENT
  Age: 65 Year
  Sex: Female
  Weight: 94.3482 kg

DRUGS (10)
  1. CARBOPLATIN [Suspect]
     Indication: NEOPLASM MALIGNANT
  2. GEMCITABINE [Suspect]
     Indication: NEOPLASM MALIGNANT
  3. LASIX [Concomitant]
  4. GLUCOPHAGE [Concomitant]
  5. DIOVAN [Concomitant]
  6. METOPROLOL [Concomitant]
  7. LORAZEPAM [Concomitant]
  8. SPIRONOLACTONE [Concomitant]
  9. PLAVIX [Concomitant]
  10. VICODIN [Concomitant]

REACTIONS (3)
  - NAUSEA [None]
  - NEUROPATHY PERIPHERAL [None]
  - VOMITING [None]
